FAERS Safety Report 13980704 (Version 3)
Quarter: 2017Q4

REPORT INFORMATION
  Report Type: Spontaneous
  Country: IT (occurrence: IT)
  Receive Date: 20170918
  Receipt Date: 20171012
  Transmission Date: 20180321
  Serious: Yes (Hospitalization)
  Sender: FDA-Public Use
  Company Number: IT-ACCORD-058607

PATIENT
  Age: 61 Year
  Sex: Female

DRUGS (14)
  1. SEQUACOR [Concomitant]
     Active Substance: BISOPROLOL
     Dosage: 1.25 MG
  2. LASIX [Concomitant]
     Active Substance: FUROSEMIDE
     Dosage: 25 MG 1 DOSAGE FORM X 2
  3. ANTRA [Concomitant]
     Active Substance: OMEPRAZOLE
     Dosage: 20 MG 1 DOSAGE FORM IN THE EVENING
  4. MEDROL [Concomitant]
     Active Substance: METHYLPREDNISOLONE
     Dosage: 16 MG,
  5. QUETIAPINE. [Suspect]
     Active Substance: QUETIAPINE
     Indication: DEPRESSION
     Dosage: STRENGTH: 25 MG?50 MG IN THE EVENING.
     Dates: start: 20170712, end: 20170712
  6. TORVAST [Concomitant]
     Active Substance: ATORVASTATIN
     Dosage: 20 MG 1 DOSAGE FORM
  7. TAVOR (LORAZEPAM) [Suspect]
     Active Substance: LORAZEPAM
     Indication: DEPRESSION
     Dosage: STRENGTH: 2.5 MG
     Route: 048
     Dates: start: 20170712, end: 20170712
  8. ALPRAZOLAM. [Suspect]
     Active Substance: ALPRAZOLAM
     Indication: DEPRESSION
     Route: 048
     Dates: start: 20170712, end: 20170712
  9. CARDIOASA [Concomitant]
  10. BRINTELLIX [Concomitant]
     Active Substance: VORTIOXETINE HYDROBROMIDE
     Dosage: 5 MG 1 DOSAGE FORM IN THE MORNING
  11. TRIATEC [Concomitant]
     Active Substance: RAMIPRIL
     Dosage: 2.5 MG A HALF DOSAGE FORM IN THE EVENING
  12. LUVION (CANRENOIC ACID) [Concomitant]
     Active Substance: CANRENOIC ACID
     Dosage: 1 DOSAGE FORM IN THE MORNING
  13. ANAFRANIL [Concomitant]
     Active Substance: CLOMIPRAMINE HYDROCHLORIDE
     Dosage: 2.5 MG 1 DOSAGE FORM IN THE MORNING
  14. EUTIROX [Concomitant]
     Active Substance: LEVOTHYROXINE SODIUM
     Dosage: 50 UG

REACTIONS (3)
  - Intentional self-injury [Recovered/Resolved]
  - Sopor [Recovered/Resolved]
  - Overdose [Recovered/Resolved]

NARRATIVE: CASE EVENT DATE: 20170712
